FAERS Safety Report 9552081 (Version 2)
Quarter: 2013Q4

REPORT INFORMATION
  Report Type: Spontaneous
  Country: US (occurrence: None)
  Receive Date: 20130923
  Receipt Date: 20131029
  Transmission Date: 20140711
  Serious: Yes (Disabling)
  Sender: FDA-Public Use
  Company Number: ACO_38522_2013

PATIENT
  Sex: Female

DRUGS (2)
  1. AMPYRA [Suspect]
     Indication: MULTIPLE SCLEROSIS
     Route: 048
     Dates: start: 20090201, end: 201303
  2. AMPYRA [Suspect]
     Indication: GAIT DISTURBANCE
     Route: 048
     Dates: start: 20090201, end: 201303

REACTIONS (7)
  - Bedridden [None]
  - Gait disturbance [None]
  - Stress [None]
  - Depression [None]
  - Crying [None]
  - Adverse drug reaction [None]
  - Death of relative [None]
